FAERS Safety Report 6104626-9 (Version None)
Quarter: 2009Q1

REPORT INFORMATION
  Report Type: 
  Country: None (occurrence: None)
  Receive Date: 20090304
  Receipt Date: 20090224
  Transmission Date: 20090719
  Serious: Yes (Other)
  Sender: FDA-Public Use
  Company Number: 2009SP003427

PATIENT
  Age: 60 Year
  Sex: Female
  Weight: 88 kg

DRUGS (3)
  1. TEMODAL [Suspect]
     Indication: BRAIN NEOPLASM
     Dosage: 140 MG; PO
     Route: 048
     Dates: start: 20081121, end: 20090101
  2. KEPPRA [Concomitant]
  3. FORTECORTIN [Concomitant]

REACTIONS (2)
  - DEEP VEIN THROMBOSIS [None]
  - FIBRINOLYSIS INCREASED [None]
